FAERS Safety Report 12423937 (Version 1)
Quarter: 2016Q2

REPORT INFORMATION
  Report Type: Spontaneous
  Country: US (occurrence: US)
  Receive Date: 20160601
  Receipt Date: 20160601
  Transmission Date: 20160815
  Serious: Yes (Hospitalization, Other)
  Sender: FDA-Public Use
  Company Number: US-AMGEN-USASP2016068502

PATIENT
  Age: 63 Year
  Sex: Male

DRUGS (7)
  1. NEULASTA [Suspect]
     Active Substance: PEGFILGRASTIM
     Indication: PRODUCT USED FOR UNKNOWN INDICATION
     Dosage: UNK UNK, UNK
     Route: 065
  2. BEVACIZUMAB [Concomitant]
     Active Substance: BEVACIZUMAB
     Dosage: FIRST LINE
  3. PEMETREXED [Concomitant]
     Active Substance: PEMETREXED
     Dosage: UNK, SECOND LINE
  4. CARBO                              /00740901/ [Concomitant]
     Dosage: FIRST LINE
  5. TAXOL [Concomitant]
     Active Substance: PACLITAXEL
     Dosage: FIRST LINE
  6. CETUXIMAB [Concomitant]
     Active Substance: CETUXIMAB
     Dosage: UNK
  7. TAXOTERE [Concomitant]
     Active Substance: DOCETAXEL
     Dosage: UNK
     Dates: start: 20141223

REACTIONS (5)
  - Cough [Unknown]
  - Pneumothorax [Unknown]
  - Hypoxia [Unknown]
  - Dyspnoea [Unknown]
  - Abdominal distension [Unknown]

NARRATIVE: CASE EVENT DATE: 201412
